FAERS Safety Report 8366393-8 (Version None)
Quarter: 2012Q1

REPORT INFORMATION
  Report Type: 
  Country: None (occurrence: None)
  Receive Date: 20120323
  Receipt Date: 20110714
  Transmission Date: 20120608
  Serious: Yes (Hospitalization)
  Sender: FDA-Public Use
  Company Number: 163-21880-11041690

PATIENT
  Age: 73 Year
  Sex: Male

DRUGS (7)
  1. COUMADIN [Concomitant]
  2. FOLIC ACID(FOLIC ACID)(UNKNOWN) [Concomitant]
  3. ACYCLOVIR(ACICLOVIR)(UNKNOWN) [Concomitant]
  4. REVLIMID [Suspect]
     Indication: MULTIPLE MYELOMA
     Dosage: 5  MG, 1 IN 1 D, PO
     Route: 048
     Dates: start: 20110314, end: 20110327
  5. DEXAMETHASONE [Concomitant]
  6. ASPIRIN [Concomitant]
  7. VELCADE [Concomitant]

REACTIONS (1)
  - DYSPNOEA [None]
